FAERS Safety Report 6694390-7 (Version None)
Quarter: 2010Q2

REPORT INFORMATION
  Report Type: 
  Country: None (occurrence: None)
  Receive Date: 20100423
  Receipt Date: 20100415
  Transmission Date: 20101027
  Serious: Yes (Death)
  Sender: FDA-Public Use
  Company Number: US-NOVOPROD-292298

PATIENT
  Sex: Male
  Weight: 129.25 kg

DRUGS (8)
  1. NOVOLOG MIX 70/30 [Suspect]
     Indication: INSULIN-REQUIRING TYPE 2 DIABETES MELLITUS
     Dosage: 65 U - AM, 70 U- PM
     Route: 058
     Dates: start: 20040507, end: 20090913
  2. ASPIRIN [Concomitant]
     Indication: PROPHYLAXIS
     Dosage: 325 UNK, BID
     Dates: start: 20040601
  3. PLAVIX [Concomitant]
     Indication: CEREBROVASCULAR ACCIDENT
     Dosage: 75 MG, QD
     Dates: start: 20021101
  4. LIPITOR [Concomitant]
     Indication: HYPERLIPIDAEMIA
     Dosage: 10 MG, QD
     Dates: start: 20041201
  5. FISH OIL [Concomitant]
     Indication: DRUG USE FOR UNKNOWN INDICATION
     Dosage: 3 CAPS, QD
  6. METFORMIN [Concomitant]
     Indication: TYPE 2 DIABETES MELLITUS
     Dosage: 1000 MG, BID
     Dates: start: 20030601
  7. ACETAMINOPHEN AND HYDROCODONE BITARTRATE [Concomitant]
     Indication: DRUG USE FOR UNKNOWN INDICATION
     Dosage: UNK
     Dates: start: 20061101
  8. GLUCOSAMINE + CHONDROITIN [Concomitant]
     Dosage: 3 TAB, QD

REACTIONS (1)
  - MYOCARDIAL INFARCTION [None]
